FAERS Safety Report 9577713 (Version 1)
Quarter: 2013Q4

REPORT INFORMATION
  Report Type: Spontaneous
  Country: US (occurrence: US)
  Receive Date: 20131001
  Receipt Date: 20131001
  Transmission Date: 20140711
  Serious: No
  Sender: FDA-Public Use
  Company Number: US-AMGEN-USASP2013009471

PATIENT
  Age: 47 Year
  Sex: Male
  Weight: 95.24 kg

DRUGS (8)
  1. ENBREL [Suspect]
     Indication: RHEUMATOID ARTHRITIS
     Dosage: 50 MG, QWK
     Route: 058
  2. PLAQUENIL                          /00072602/ [Concomitant]
     Dosage: 200 MG, UNK
     Route: 048
  3. SERTRALINE [Concomitant]
     Dosage: 50 MG, UNK
     Route: 048
  4. AMLODIPINE [Concomitant]
     Dosage: 5 MG, UNK
     Route: 048
  5. METHOTREXATE [Concomitant]
     Dosage: 2.5 MG, UNK
     Route: 048
  6. PREDNISONE [Concomitant]
     Dosage: 5 MG, UNK
     Route: 048
  7. LISINOPRIL [Concomitant]
     Dosage: 10 MG, UNK
     Route: 048
  8. FOLIC ACID [Concomitant]
     Dosage: UNK
     Route: 048

REACTIONS (3)
  - Tonsillitis [Recovered/Resolved]
  - Tooth abscess [Recovered/Resolved]
  - Infection [Recovered/Resolved]
